FAERS Safety Report 16100188 (Version 1)
Quarter: 2019Q1

REPORT INFORMATION
  Report Type: Spontaneous
  Country: US (occurrence: US)
  Receive Date: 20190321
  Receipt Date: 20190321
  Transmission Date: 20190418
  Serious: Yes (Other)
  Sender: FDA-Public Use
  Company Number: US-RECKITT BENCKISER HEALTHCARE INT LIMITED-RB-81877-2019

PATIENT
  Age: 42 Year
  Sex: Female

DRUGS (1)
  1. CLEARASIL ULTRA VANISHING RAPID ACTION TREATMENT [Suspect]
     Active Substance: BENZOYL PEROXIDE
     Indication: ACNE
     Dosage: USED A DOT OF THE PRODUCT, SINGLE
     Route: 061
     Dates: start: 20190208

REACTIONS (3)
  - Third degree chemical burn of skin [Not Recovered/Not Resolved]
  - Burning sensation [Not Recovered/Not Resolved]
  - Haemorrhage [Not Recovered/Not Resolved]

NARRATIVE: CASE EVENT DATE: 20190208
